FAERS Safety Report 6935191-1 (Version None)
Quarter: 2010Q3

REPORT INFORMATION
  Report Type: 
  Country: None (occurrence: None)
  Receive Date: 20100822
  Receipt Date: 20100816
  Transmission Date: 20110219
  Serious: Yes (Death)
  Sender: FDA-Public Use
  Company Number: PHFR2010GB01988

PATIENT
  Sex: Male

DRUGS (3)
  1. CLOZARIL [Suspect]
     Indication: SCHIZOPHRENIA
     Dosage: UNK
     Route: 048
     Dates: start: 20020307
  2. CLOZARIL [Suspect]
     Indication: MAJOR DEPRESSION
  3. METHADONE HCL [Concomitant]
     Dosage: UNK

REACTIONS (2)
  - COMPLETED SUICIDE [None]
  - DEATH [None]
